FAERS Safety Report 8510909-5 (Version None)
Quarter: 2012Q3

REPORT INFORMATION
  Report Type: 
  Country: None (occurrence: None)
  Receive Date: 20120703
  Receipt Date: 20120618
  Transmission Date: 20120928
  Serious: Yes (Hospitalization, Other)
  Sender: FDA-Public Use
  Company Number: 2012MA006857

PATIENT
  Age: 58 Year
  Sex: Male
  Weight: 72 kg

DRUGS (4)
  1. IRINOTECAN HYDROCHLORIDE [Suspect]
     Indication: COLON CANCER
     Dosage: ; IV
     Route: 042
  2. PANITUMUMAB (NO PREF. NAME) [Suspect]
     Indication: COLON CANCER
     Dosage: ; IV
     Route: 042
  3. FLUOROURACIL [Suspect]
     Indication: COLON CANCER
     Dosage: ; IV
     Route: 042
  4. LEUCOVORIN CALCIUM [Suspect]
     Indication: COLON CANCER
     Dosage: ; IV
     Route: 042

REACTIONS (6)
  - PARONYCHIA [None]
  - INTERSTITIAL LUNG DISEASE [None]
  - TUMOUR MARKER INCREASED [None]
  - RESPIRATORY FAILURE [None]
  - PALMAR-PLANTAR ERYTHRODYSAESTHESIA SYNDROME [None]
  - HYPERTENSION [None]
